FAERS Safety Report 9314496 (Version 2)
Quarter: 2013Q2

REPORT INFORMATION
  Report Type: Spontaneous
  Country: DE (occurrence: None)
  Receive Date: 20130524
  Receipt Date: 20130530
  Transmission Date: 20140414
  Serious: Yes (Disabling, Other)
  Sender: FDA-Public Use
  Company Number: ADR-2013-00871

PATIENT
  Sex: Female

DRUGS (5)
  1. BACLOFEN INTRATHECAL [Suspect]
     Indication: MUSCLE SPASTICITY
  2. NABIXIMOLS [Suspect]
     Indication: MUSCLE SPASTICITY
  3. GABAPENTIN [Concomitant]
  4. TOLPERISON [Concomitant]
  5. INTRATHECAL TCA [Concomitant]

REACTIONS (10)
  - Drug effect decreased [None]
  - Musculoskeletal disorder [None]
  - Muscle spasticity [None]
  - Pain [None]
  - Muscle spasms [None]
  - Muscle spasms [None]
  - Joint contracture [None]
  - Monoplegia [None]
  - Somnolence [None]
  - Activities of daily living impaired [None]
